FAERS Safety Report 8021900-X (Version None)
Quarter: 2011Q4

REPORT INFORMATION
  Report Type: 
  Country: None (occurrence: None)
  Receive Date: 20111229
  Receipt Date: 20111221
  Transmission Date: 20120403
  Serious: Yes (Hospitalization)
  Sender: FDA-Public Use
  Company Number: 1145694

PATIENT
  Age: 41 Year
  Sex: Female

DRUGS (5)
  1. DOCETAXEL [Suspect]
     Indication: CHEMOTHERAPY
     Dosage: 1 COURSE,, INTRAVENOUS DRIP
     Route: 041
     Dates: start: 20110628, end: 20110628
  2. EPIRUBICIN [Suspect]
     Indication: CHEMOTHERAPY
     Dosage: 4 SOURSES,, INTRAVENOUS DRIP
     Route: 041
     Dates: start: 20110405, end: 20110607
  3. PACLITAXEL [Suspect]
     Indication: CHEMOTHERAPY
     Dosage: 3 COURSES,, INTRAVENOUS DRIP
     Route: 041
     Dates: start: 20110719, end: 20110913
  4. CYCLOPHOSPHAMIDE [Suspect]
     Indication: CHEMOTHERAPY
     Dosage: 4 COURSES,, INTRAVENOUS (NOT OTHERWISE SPECIFIED)
     Route: 042
     Dates: start: 20110405, end: 20110607
  5. FLUOROURACIL [Suspect]
     Indication: CHEMOTHERAPY
     Dosage: 4 COURSES,, INTRAVENOUS DRIP
     Route: 041
     Dates: start: 20110405, end: 20110607

REACTIONS (5)
  - TACHYCARDIA [None]
  - NEUROPATHY PERIPHERAL [None]
  - CONGESTIVE CARDIOMYOPATHY [None]
  - HYPOTENSION [None]
  - PAIN [None]
